FAERS Safety Report 9445019 (Version 2)
Quarter: 2013Q3

REPORT INFORMATION
  Report Type: Spontaneous
  Country: US (occurrence: US)
  Receive Date: 20130807
  Receipt Date: 20130906
  Transmission Date: 20140515
  Serious: Yes (Other)
  Sender: FDA-Public Use
  Company Number: US-BAYER-2013-093182

PATIENT
  Age: 27 Year
  Sex: Female

DRUGS (1)
  1. MIRENA [Suspect]
     Indication: CONTRACEPTION
     Dosage: 20 MCG/24HR, CONT
     Route: 015
     Dates: start: 200906, end: 20130701

REACTIONS (6)
  - Abortion spontaneous [None]
  - Haemorrhage in pregnancy [None]
  - Human chorionic gonadotropin decreased [None]
  - Pregnancy test positive [None]
  - Drug ineffective [None]
  - Hypomenorrhoea [None]
